APPROVED DRUG PRODUCT: SODIUM CHLORIDE 0.9% IN PLASTIC CONTAINER
Active Ingredient: SODIUM CHLORIDE
Strength: 900MG/100ML
Dosage Form/Route: INJECTABLE;INJECTION
Application: N019480 | Product #001 | TE Code: AP
Applicant: HOSPIRA INC
Approved: Sep 17, 1985 | RLD: Yes | RS: Yes | Type: RX